FAERS Safety Report 24871143 (Version 1)
Quarter: 2025Q1

REPORT INFORMATION
  Report Type: Spontaneous
  Country: GB (occurrence: GB)
  Receive Date: 20250122
  Receipt Date: 20250122
  Transmission Date: 20250409
  Serious: Yes (Disabling)
  Sender: DEXCEL
  Company Number: None

PATIENT
  Age: 48 Year
  Sex: Female
  Weight: 57 kg

DRUGS (1)
  1. OMEPRAZOLE [Suspect]
     Active Substance: OMEPRAZOLE
     Indication: Gastrooesophageal reflux disease
     Dosage: 20MG ONCE A DAY
     Dates: start: 20241101, end: 20241117

REACTIONS (2)
  - Back pain [Recovering/Resolving]
  - Pain in extremity [Not Recovered/Not Resolved]

NARRATIVE: CASE EVENT DATE: 20241112
